FAERS Safety Report 9756412 (Version 1)
Quarter: 2013Q4

REPORT INFORMATION
  Report Type: Spontaneous
  Country: US (occurrence: US)
  Receive Date: 20131213
  Receipt Date: 20131213
  Transmission Date: 20140711
  Serious: No
  Sender: FDA-Public Use
  Company Number: US-GLAXOSMITHKLINE-A1040554A

PATIENT
  Age: 18 Year
  Sex: Female

DRUGS (6)
  1. TARGET NTS CLEAR 14 MG [Suspect]
     Indication: EX-TOBACCO USER
     Dates: start: 20130905
  2. VYVANSE [Concomitant]
  3. LAMICTAL [Concomitant]
  4. CYMBALTA [Concomitant]
  5. ATIVAN [Concomitant]
  6. BIRTH CONTROL [Concomitant]

REACTIONS (1)
  - Abnormal dreams [Recovered/Resolved]
